FAERS Safety Report 21943821 (Version 1)
Quarter: 2023Q1

REPORT INFORMATION
  Report Type: Spontaneous
  Country: RS (occurrence: RS)
  Receive Date: 20230202
  Receipt Date: 20230202
  Transmission Date: 20230418
  Serious: Yes (Other)
  Sender: FDA-Public Use
  Company Number: RS-BoehringerIngelheim-2023-BI-215124

PATIENT
  Age: 56 Year
  Sex: Female

DRUGS (7)
  1. MELOXICAM [Suspect]
     Active Substance: MELOXICAM
     Indication: Back pain
     Dosage: 15 MG AS NECESSARY; 3 TIMES WEEKLY AT AVERAGE
     Dates: start: 2021, end: 2022
  2. ALFACALCIDOL [Concomitant]
     Active Substance: ALFACALCIDOL
     Indication: Product used for unknown indication
  3. NEBIVOLOL HYDROCHLORIDE [Concomitant]
     Active Substance: NEBIVOLOL HYDROCHLORIDE
     Indication: Product used for unknown indication
  4. MIDOL [Concomitant]
     Active Substance: IBUPROFEN
     Indication: Back pain
     Dosage: AVERAGE 3 TIMES WEEKLY
     Route: 048
  5. DICLOFENAC [Concomitant]
     Active Substance: DICLOFENAC
     Indication: Back pain
     Dosage: AVERAGE 3 TIMES WEEKLY
     Route: 048
     Dates: start: 2021, end: 2022
  6. NIMULID [Concomitant]
     Indication: Back pain
     Dosage: AVERAGE 3 TIMES WEEKLY
     Route: 048
     Dates: start: 2021, end: 2022
  7. Bensedine [Concomitant]
     Indication: Back pain
     Dosage: AVERAGE 3 TIMES WEEKLY

REACTIONS (1)
  - Fixed eruption [Recovered/Resolved]

NARRATIVE: CASE EVENT DATE: 20210301
